FAERS Safety Report 14623231 (Version 2)
Quarter: 2018Q1

REPORT INFORMATION
  Report Type: Report from Study
  Country: BR (occurrence: BR)
  Receive Date: 20180312
  Receipt Date: 20180320
  Transmission Date: 20180509
  Serious: Yes (Life-Threatening, Other)
  Sender: FDA-Public Use
  Company Number: BR-ALXN-A201801305AA

PATIENT
  Age: 41 Year
  Sex: Female

DRUGS (3)
  1. SOLIRIS [Suspect]
     Active Substance: ECULIZUMAB
     Dosage: 900 MG, Q2W
     Route: 042
     Dates: start: 20120524
  2. MORPHINE [Concomitant]
     Active Substance: MORPHINE
     Indication: PRODUCT USED FOR UNKNOWN INDICATION
     Dosage: UNK
     Route: 065
  3. SOLIRIS [Suspect]
     Active Substance: ECULIZUMAB
     Indication: PAROXYSMAL NOCTURNAL HAEMOGLOBINURIA
     Dosage: 600 MG, QW
     Route: 042
     Dates: start: 20120426, end: 20120517

REACTIONS (31)
  - Urine flow decreased [Unknown]
  - Gastrooesophageal reflux disease [Unknown]
  - Thrombosis [Unknown]
  - Seizure [Unknown]
  - Malaise [Not Recovered/Not Resolved]
  - Haemolysis [Unknown]
  - Disturbance in attention [Unknown]
  - Pain [Unknown]
  - Fatigue [Not Recovered/Not Resolved]
  - Headache [Unknown]
  - Multiple organ dysfunction syndrome [Unknown]
  - Quadriplegia [Unknown]
  - Musculoskeletal disorder [Unknown]
  - Oesophageal disorder [Unknown]
  - Dyspnoea [Unknown]
  - Memory impairment [Unknown]
  - Tendonitis [Unknown]
  - Abdominal pain [Recovering/Resolving]
  - Nausea [Not Recovered/Not Resolved]
  - Chest pain [Unknown]
  - Intervertebral disc protrusion [Unknown]
  - Fall [Unknown]
  - Dysphagia [Not Recovered/Not Resolved]
  - Migraine [Not Recovered/Not Resolved]
  - Product quality issue [Unknown]
  - Inappropriate schedule of drug administration [Not Recovered/Not Resolved]
  - Cerebral thrombosis [Unknown]
  - Monoplegia [Unknown]
  - Chromaturia [Unknown]
  - Gait disturbance [Unknown]
  - Dizziness [Unknown]

NARRATIVE: CASE EVENT DATE: 201706
